FAERS Safety Report 19997215 (Version 1)
Quarter: 2021Q4

REPORT INFORMATION
  Report Type: Spontaneous
  Country: US (occurrence: US)
  Receive Date: 20211025
  Receipt Date: 20211025
  Transmission Date: 20220303
  Serious: Yes (Other)
  Sender: FDA-Public Use
  Company Number: US-DRREDDYS-SPO/USA/21/0142693

PATIENT
  Age: 45 Year
  Sex: Female

DRUGS (1)
  1. ZENATANE [Suspect]
     Active Substance: ISOTRETINOIN
     Indication: Product used for unknown indication
     Dosage: RMA ISSUE DATE: 25/JUNE/2021 3:36:32 PM , 23/JULY/2021 9:12:31 AM, 24/AUGUST/2021 1:09:36 PM, 27/SEP

REACTIONS (1)
  - Surgery [Unknown]
